FAERS Safety Report 6625733-8 (Version None)
Quarter: 2010Q1

REPORT INFORMATION
  Report Type: 
  Country: None (occurrence: None)
  Receive Date: 20100310
  Receipt Date: 20100301
  Transmission Date: 20100710
  Serious: Yes (Death, Hospitalization, Other)
  Sender: FDA-Public Use
  Company Number: US-AMGEN-KDL377630

PATIENT
  Sex: Male
  Weight: 113.5 kg

DRUGS (4)
  1. PROCRIT [Suspect]
     Indication: ANAEMIA OF MALIGNANT DISEASE
     Route: 065
     Dates: start: 20090908
  2. MORPHINE [Concomitant]
  3. NEUPOGEN [Concomitant]
     Indication: CHEMOTHERAPY
  4. SCOPOLAMINE [Concomitant]

REACTIONS (24)
  - ABASIA [None]
  - BACK PAIN [None]
  - BALANCE DISORDER [None]
  - BLOOD PRESSURE DECREASED [None]
  - BURNING SENSATION [None]
  - CHEST PAIN [None]
  - CHILLS [None]
  - COORDINATION ABNORMAL [None]
  - CYSTITIS [None]
  - DEATH [None]
  - FALL [None]
  - GAIT DISTURBANCE [None]
  - HEMIPARESIS [None]
  - HYPOAESTHESIA [None]
  - INJECTION SITE PAIN [None]
  - INTESTINAL FUNCTIONAL DISORDER [None]
  - MOTOR DYSFUNCTION [None]
  - MUSCULOSKELETAL PAIN [None]
  - MYALGIA [None]
  - NECK PAIN [None]
  - PAIN [None]
  - PAIN IN EXTREMITY [None]
  - PARALYSIS [None]
  - THROMBOSIS [None]
